FAERS Safety Report 6456649-8 (Version None)
Quarter: 2009Q4

REPORT INFORMATION
  Report Type: 
  Country: None (occurrence: None)
  Receive Date: 20091120
  Receipt Date: 20091106
  Transmission Date: 20100525
  Serious: Yes (Other)
  Sender: FDA-Public Use
  Company Number: MC200900393

PATIENT
  Age: 59 Year
  Sex: Female

DRUGS (3)
  1. CLEVIPREX         (CLEVIDIPINE BUTYRATE) [Suspect]
     Indication: PROCEDURAL HYPERTENSION
     Dosage: 2 MG, HR, INTRAVENOUS
     Route: 042
     Dates: start: 20091025
  2. DOPAMINE HCL [Concomitant]
  3. MILRINONE LACTATE [Concomitant]

REACTIONS (10)
  - AGITATION [None]
  - ATRIAL FLUTTER [None]
  - ATRIOVENTRICULAR DISSOCIATION [None]
  - CARDIAC FAILURE CONGESTIVE [None]
  - CARDIAC INDEX DECREASED [None]
  - LUNG INFILTRATION [None]
  - OXYGEN SATURATION DECREASED [None]
  - POST PROCEDURAL COMPLICATION [None]
  - PULMONARY OEDEMA [None]
  - TACHYCARDIA [None]
